FAERS Safety Report 4282362-1 (Version None)
Quarter: 2004Q1

REPORT INFORMATION
  Report Type: 
  Country: None (occurrence: None)
  Receive Date: 20040114
  Receipt Date: 20031029
  Transmission Date: 20041129
  Serious: Yes (Life-Threatening)
  Sender: FDA-Public Use
  Company Number: BIVUS030106

PATIENT
  Sex: 0

DRUGS (2)
  1. ANGIOMAX [Suspect]
     Indication: ANTICOAGULANT THERAPY
     Dosage: INTRAVENOUS
     Route: 042
  2. ANGIOMAX [Suspect]
     Indication: STENT PLACEMENT
     Dosage: INTRAVENOUS
     Route: 042

REACTIONS (1)
  - CORONARY ARTERY THROMBOSIS [None]
